FAERS Safety Report 17290298 (Version 12)
Quarter: 2020Q3

REPORT INFORMATION
  Report Type: Report from Study
  Country: None (occurrence: NL)
  Receive Date: 20200121
  Receipt Date: 20200904
  Transmission Date: 20201102
  Serious: Yes (Death, Hospitalization, Other)
  Sender: FDA-Public Use
  Company Number: NL-ABBVIE-19S-114-2712134-00

PATIENT
  Age: 78 Year
  Sex: Male

DRUGS (6)
  1. MACROGOL [Concomitant]
     Active Substance: POLYETHYLENE GLYCOLS
     Indication: PRODUCT USED FOR UNKNOWN INDICATION
  2. DUODOPA [Suspect]
     Active Substance: CARBIDOPA\LEVODOPA
     Dosage: OD 6.9 CD 4.9 ED 3.0 , CDN 3.4 END: 2.8; 24 HOUR  ADMINISTRATION
     Route: 050
  3. DUODOPA [Suspect]
     Active Substance: CARBIDOPA\LEVODOPA
     Route: 050
  4. MACROGOL [Concomitant]
     Active Substance: POLYETHYLENE GLYCOLS
     Indication: ABNORMAL FAECES
  5. DUODOPA [Suspect]
     Active Substance: CARBIDOPA\LEVODOPA
     Dosage: MD: 6.0, CD: 5.8, ED: 3.0, CND: 3.6, END: 2.8; 24 HOUR ADMINISTRATION
     Route: 050
  6. DUODOPA [Suspect]
     Active Substance: CARBIDOPA\LEVODOPA
     Indication: PARKINSON^S DISEASE
     Route: 050
     Dates: start: 20170807

REACTIONS (40)
  - Wrong technique in product usage process [Unknown]
  - Wrong technique in device usage process [Unknown]
  - Fatigue [Not Recovered/Not Resolved]
  - Gait disturbance [Not Recovered/Not Resolved]
  - Stoma site reaction [Not Recovered/Not Resolved]
  - Illness [Not Recovered/Not Resolved]
  - Memory impairment [Not Recovered/Not Resolved]
  - Appetite disorder [Not Recovered/Not Resolved]
  - Tension [Unknown]
  - Unevaluable event [Not Recovered/Not Resolved]
  - Bradykinesia [Not Recovered/Not Resolved]
  - Rehabilitation therapy [Not Recovered/Not Resolved]
  - Muscle spasms [Not Recovered/Not Resolved]
  - Pleural effusion [Not Recovered/Not Resolved]
  - General physical health deterioration [Unknown]
  - Obsessive-compulsive disorder [Unknown]
  - Hallucination [Not Recovered/Not Resolved]
  - Anxiety [Not Recovered/Not Resolved]
  - Stoma site discharge [Not Recovered/Not Resolved]
  - Stoma site erythema [Unknown]
  - Therapeutic product effect incomplete [Not Recovered/Not Resolved]
  - Lung cancer metastatic [Not Recovered/Not Resolved]
  - Poor quality sleep [Not Recovered/Not Resolved]
  - Weight decreased [Recovering/Resolving]
  - Confusional state [Not Recovered/Not Resolved]
  - Stoma site inflammation [Recovered/Resolved]
  - Hospitalisation [Unknown]
  - Abnormal dreams [Not Recovered/Not Resolved]
  - Dyskinesia [Not Recovered/Not Resolved]
  - On and off phenomenon [Not Recovered/Not Resolved]
  - Parkinson^s disease [Not Recovered/Not Resolved]
  - Death [Fatal]
  - Asthenia [Not Recovered/Not Resolved]
  - Pollakiuria [Not Recovered/Not Resolved]
  - Abnormal faeces [Not Recovered/Not Resolved]
  - Fall [Not Recovered/Not Resolved]
  - Freezing phenomenon [Not Recovered/Not Resolved]
  - Dystonia [Not Recovered/Not Resolved]
  - Tremor [Not Recovered/Not Resolved]
  - Fear [Not Recovered/Not Resolved]

NARRATIVE: CASE EVENT DATE: 20191017
